FAERS Safety Report 26108793 (Version 1)
Quarter: 2025Q4

REPORT INFORMATION
  Report Type: Spontaneous
  Country: CN (occurrence: CN)
  Receive Date: 20251201
  Receipt Date: 20251201
  Transmission Date: 20260117
  Serious: Yes (Life-Threatening, Other)
  Sender: BAYER HEALTHCARE PHARMACEUTICALS INC.
  Company Number: CN-BAYER-2025A156716

PATIENT
  Age: 50 Year
  Sex: Male
  Weight: 90 kg

DRUGS (3)
  1. ULTRAVIST [Suspect]
     Active Substance: IOPROMIDE
     Indication: Computerised tomogram abdomen
     Dosage: 90 MLONCE
     Route: 042
     Dates: start: 20251108, end: 20251108
  2. ULTRAVIST [Suspect]
     Active Substance: IOPROMIDE
     Indication: Intestinal obstruction
  3. ULTRAVIST [Suspect]
     Active Substance: IOPROMIDE
     Indication: Mesenteric panniculitis

REACTIONS (10)
  - Anaphylactic shock [Recovering/Resolving]
  - Oxygen saturation immeasurable [Recovered/Resolved]
  - Blood pressure decreased [Recovered/Resolved]
  - Dyspnoea [Recovering/Resolving]
  - Urinary incontinence [None]
  - Anal incontinence [None]
  - Hyperhidrosis [None]
  - Oxygen saturation decreased [Recovered/Resolved]
  - Cardiac discomfort [Recovering/Resolving]
  - Blood pressure increased [None]

NARRATIVE: CASE EVENT DATE: 20251108
